FAERS Safety Report 4894765-2 (Version None)
Quarter: 2006Q1

REPORT INFORMATION
  Report Type: 
  Country: None (occurrence: None)
  Receive Date: 20060126
  Receipt Date: 20060126
  Transmission Date: 20060701
  Serious: Yes (Hospitalization)
  Sender: FDA-Public Use
  Company Number: None

PATIENT
  Age: 65 Year
  Sex: Male
  Weight: 58.0604 kg

DRUGS (2)
  1. CISPLATIN [Suspect]
     Indication: NEOPLASM MALIGNANT
     Dosage: 50 MG WEEKLY IV
     Route: 042
     Dates: start: 20051128, end: 20051227
  2. IRINOTECAN HCL [Suspect]
     Dosage: 90 MG WEEKLY IV
     Route: 042
     Dates: start: 20051128, end: 20051227

REACTIONS (5)
  - COMMUNICATION DISORDER [None]
  - PERFORMANCE STATUS DECREASED [None]
  - PYREXIA [None]
  - TREMOR [None]
  - UROSEPSIS [None]
